FAERS Safety Report 4951909-1 (Version None)
Quarter: 2006Q1

REPORT INFORMATION
  Report Type: 
  Country: None (occurrence: None)
  Receive Date: 20060320
  Receipt Date: 20060307
  Transmission Date: 20060701
  Serious: Yes (Hospitalization)
  Sender: FDA-Public Use
  Company Number: 200610194BFR

PATIENT
  Age: 45 Year
  Sex: Male
  Weight: 70 kg

DRUGS (5)
  1. CIPROFLAXACIN [Suspect]
     Indication: OSTEITIS
     Dosage: 1500 MG, TOTAL DAILY, ORAL
     Route: 048
     Dates: start: 20060107, end: 20060128
  2. TAZOCILLINE [Suspect]
     Indication: OSTEITIS
     Dosage: 12 G, TOTAL DAILY, INTRAVENOUS
     Route: 042
     Dates: start: 20060107, end: 20060128
  3. PLAVIX [Suspect]
     Dosage: QD, ORAL
     Route: 048
     Dates: start: 20051230, end: 20060120
  4. CHRONADALATE LP (NIFEDIPINE) [Suspect]
     Indication: RAYNAUD'S PHENOMENON
     Dates: start: 20010101
  5. KARDEGIC [Concomitant]

REACTIONS (13)
  - CYTOLYTIC HEPATITIS [None]
  - DERMATITIS EXFOLIATIVE [None]
  - DISEASE PROGRESSION [None]
  - HAPTOGLOBIN DECREASED [None]
  - INTERSTITIAL LUNG DISEASE [None]
  - MYALGIA [None]
  - NORMOCHROMIC NORMOCYTIC ANAEMIA [None]
  - PROTEINURIA [None]
  - PSEUDOMONAS INFECTION [None]
  - PURULENCE [None]
  - RENAL FAILURE ACUTE [None]
  - SYSTEMIC SCLEROSIS [None]
  - THROMBOTIC THROMBOCYTOPENIC PURPURA [None]
